FAERS Safety Report 9365101 (Version 2)
Quarter: 2013Q4

REPORT INFORMATION
  Report Type: Spontaneous
  Country: US (occurrence: US)
  Receive Date: 20130624
  Receipt Date: 20131126
  Transmission Date: 20140711
  Serious: Yes (Hospitalization, Other)
  Sender: FDA-Public Use
  Company Number: US-B.I. PHARMACEUTICALS,INC./RIDGEFIELD-2013-BI-17548BP

PATIENT
  Age: 92 Year
  Sex: Female
  Weight: 54.43 kg

DRUGS (8)
  1. PRADAXA [Suspect]
     Indication: ATRIAL FIBRILLATION
     Dosage: 150 MG
     Route: 048
     Dates: start: 20120409, end: 20120731
  2. ASPIRIN EC [Concomitant]
     Dosage: 81 MG
     Route: 048
  3. CARDIZEM CD [Concomitant]
     Dosage: 120 MG
     Route: 048
  4. LOPRESSOR [Concomitant]
     Dosage: 50 MG
     Route: 048
  5. MULTIVITAMIN [Concomitant]
     Route: 048
  6. ZOCOR [Concomitant]
     Dosage: 20 MG
     Route: 048
  7. ACETAMINOPHEN [Concomitant]
     Indication: ARTHRALGIA
     Route: 048
  8. NAPROXEN [Concomitant]
     Indication: ARTHRALGIA
     Route: 048

REACTIONS (12)
  - Subdural haematoma [Unknown]
  - Coagulopathy [Unknown]
  - Fall [Unknown]
  - Haemorrhagic anaemia [Unknown]
  - Conjunctival haemorrhage [Unknown]
  - Contusion [Unknown]
  - Excoriation [Unknown]
  - Laceration [Unknown]
  - Clavicle fracture [Unknown]
  - Radius fracture [Unknown]
  - Spinal fracture [Unknown]
  - Ecchymosis [Unknown]
